FAERS Safety Report 7738545-9 (Version None)
Quarter: 2011Q3

REPORT INFORMATION
  Report Type: 
  Country: None (occurrence: None)
  Receive Date: 20110906
  Receipt Date: 20110822
  Transmission Date: 20111222
  Serious: Yes (Other)
  Sender: FDA-Public Use
  Company Number: AUR-APL-2011-03549

PATIENT
  Age: 59 Year
  Sex: Male

DRUGS (6)
  1. CHLORPROMAZINE [Concomitant]
  2. DICLOFENAC SODIUM [Concomitant]
  3. OLANZAPINE [Suspect]
     Indication: PSYCHOTIC DISORDER
     Dosage: (5 MG)
     Dates: start: 20110301, end: 20110301
  4. OMEPRAZOLE [Concomitant]
  5. RISPERIDONE [Suspect]
     Indication: PSYCHOTIC DISORDER
     Dosage: (4MG), ORAL
     Route: 048
     Dates: start: 20101001, end: 20110101
  6. NIFEDIPINE [Concomitant]

REACTIONS (3)
  - DIPLOPIA [None]
  - PANIC ATTACK [None]
  - THERAPEUTIC RESPONSE UNEXPECTED [None]
